FAERS Safety Report 4840470-8 (Version None)
Quarter: 2005Q4

REPORT INFORMATION
  Report Type: 
  Country: None (occurrence: None)
  Receive Date: 20051130
  Receipt Date: 20050331
  Transmission Date: 20060501
  Serious: Yes (Hospitalization)
  Sender: FDA-Public Use
  Company Number: US-BRISTOL-MYERS SQUIBB COMPANY-12917399

PATIENT
  Age: 72 Year
  Sex: Female

DRUGS (12)
  1. ERBITUX [Suspect]
     Indication: COLORECTAL CANCER
     Route: 042
     Dates: start: 20050119, end: 20050119
  2. CALCIUM GLUCONATE [Concomitant]
  3. HYDROCODONE [Concomitant]
  4. KLOR-CON [Concomitant]
  5. LASIX [Concomitant]
  6. NEURONTIN [Concomitant]
  7. PROTONIX [Concomitant]
  8. REGLAN [Concomitant]
  9. SYNTHROID [Concomitant]
  10. TIAZAC [Concomitant]
  11. TOPROL-XL [Concomitant]
  12. XANAX [Concomitant]

REACTIONS (1)
  - INFUSION RELATED REACTION [None]
